FAERS Safety Report 12481967 (Version 1)
Quarter: 2016Q2

REPORT INFORMATION
  Report Type: Report from Study
  Country: US (occurrence: US)
  Receive Date: 20160620
  Receipt Date: 20160620
  Transmission Date: 20160815
  Serious: Yes (Other)
  Sender: FDA-Public Use
  Company Number: US-GILEAD-2016-0216624

PATIENT
  Age: 41 Year
  Sex: Male

DRUGS (2)
  1. UPTRAVI [Concomitant]
     Active Substance: SELEXIPAG
  2. AMBRISENTAN [Suspect]
     Active Substance: AMBRISENTAN
     Indication: PRODUCT USED FOR UNKNOWN INDICATION
     Dosage: 10 MG, QD
     Route: 065

REACTIONS (15)
  - Headache [Unknown]
  - Syncope [Unknown]
  - Pain [Unknown]
  - Exercise tolerance decreased [Unknown]
  - Cough [Unknown]
  - Fatigue [Unknown]
  - Swollen tongue [Recovered/Resolved]
  - Diarrhoea [Unknown]
  - Chest pain [Unknown]
  - Dyspnoea [Unknown]
  - Swelling face [Recovered/Resolved]
  - Dizziness [Unknown]
  - Nausea [Unknown]
  - Pain in jaw [Unknown]
  - Vomiting [Unknown]
